FAERS Safety Report 4273649-7 (Version None)
Quarter: 2004Q1

REPORT INFORMATION
  Report Type: 
  Country: None (occurrence: None)
  Receive Date: 20040114
  Receipt Date: 20040105
  Transmission Date: 20041129
  Serious: Yes (Death)
  Sender: FDA-Public Use
  Company Number: NSADSS2002040522

PATIENT
  Age: 72 Year
  Sex: Male
  Weight: 105.6881 kg

DRUGS (3)
  1. REMICADE [Suspect]
     Indication: RHEUMATOID ARTHRITIS
     Dosage: 4.72 MG/KG, 1 IN 1 AS NECESSARY, INTRAVENOUS DRIP
     Route: 041
     Dates: start: 20001201, end: 20001201
  2. REMICADE [Suspect]
     Indication: RHEUMATOID ARTHRITIS
     Dosage: 4.72 MG/KG, 1 IN 1 AS NECESSARY, INTRAVENOUS DRIP
     Route: 041
     Dates: start: 20020926, end: 20020926
  3. METHOTREXATE SODIUM [Concomitant]

REACTIONS (8)
  - ADRENAL MASS [None]
  - BONE MARROW DEPRESSION [None]
  - CARDIO-RESPIRATORY ARREST [None]
  - DRUG LEVEL DECREASED [None]
  - HYPOTENSION [None]
  - MOUTH HAEMORRHAGE [None]
  - SEPSIS [None]
  - WEIGHT DECREASED [None]
